FAERS Safety Report 10058024 (Version 2)
Quarter: 2014Q2

REPORT INFORMATION
  Report Type: Spontaneous
  Country: US (occurrence: US)
  Receive Date: 20140404
  Receipt Date: 20140404
  Transmission Date: 20141212
  Serious: Yes (Other)
  Sender: FDA-Public Use
  Company Number: US-GE HEALTHCARE MEDICAL DIAGNOSTICS-OSCN-PR-0802S-0078

PATIENT
  Age: 70 Year
  Sex: Male

DRUGS (4)
  1. MAGNEVIST [Suspect]
     Indication: PRODUCT USED FOR UNKNOWN INDICATION
     Route: 065
     Dates: start: 20031024, end: 20031024
  2. MAGNEVIST [Suspect]
     Route: 065
     Dates: start: 20060323, end: 20060323
  3. MAGNEVIST [Suspect]
     Route: 065
     Dates: start: 20060502, end: 20060502
  4. MAGNEVIST [Suspect]
     Route: 065
     Dates: start: 20070522, end: 20070522

REACTIONS (1)
  - Nephrogenic systemic fibrosis [Not Recovered/Not Resolved]
